FAERS Safety Report 11922117 (Version 3)
Quarter: 2016Q2

REPORT INFORMATION
  Report Type: Spontaneous
  Country: US (occurrence: US)
  Receive Date: 20160115
  Receipt Date: 20160411
  Transmission Date: 20160815
  Serious: No
  Sender: FDA-Public Use
  Company Number: US-PFIZER INC-2016015531

PATIENT
  Age: 48 Year
  Sex: Male
  Weight: 102.49 kg

DRUGS (1)
  1. SUTENT [Suspect]
     Active Substance: SUNITINIB MALATE
     Indication: RENAL CANCER STAGE IV
     Dosage: 50 MG, CYCLIC (28 DAYS ON/14 DAYS OFF)
     Dates: start: 20160105, end: 20160314

REACTIONS (7)
  - Nasal dryness [Unknown]
  - Epistaxis [Unknown]
  - Increased appetite [Unknown]
  - Feeling abnormal [Unknown]
  - Hypertension [Unknown]
  - Renal cancer stage IV [Unknown]
  - Disease progression [Unknown]
